FAERS Safety Report 16779938 (Version 1)
Quarter: 2019Q3

REPORT INFORMATION
  Report Type: Spontaneous
  Country: US (occurrence: US)
  Receive Date: 20190906
  Receipt Date: 20190906
  Transmission Date: 20191005
  Serious: Yes (Life-Threatening)
  Sender: FDA-Public Use
  Company Number: US-ASTRAZENECA-2006BM00326

PATIENT
  Age: 40 Year
  Sex: Female
  Weight: 108.8 kg

DRUGS (14)
  1. XANAX [Concomitant]
     Active Substance: ALPRAZOLAM
     Route: 065
  2. TRICOR [Concomitant]
     Active Substance: FENOFIBRATE
     Route: 065
  3. BLINDED LASIX [Concomitant]
     Route: 065
  4. PIOGLITAZONE. [Concomitant]
     Active Substance: PIOGLITAZONE
     Route: 065
  5. METFORMIN [Concomitant]
     Active Substance: METFORMIN HYDROCHLORIDE
     Route: 065
  6. BYETTA [Suspect]
     Active Substance: EXENATIDE
     Indication: TYPE 2 DIABETES MELLITUS
     Dosage: 90.0UG ONCE/SINGLE ADMINISTRATION
     Route: 058
  7. FLUTICASONE PROPRIONATE/SALMETEROL XINOFOATE DISKUS [Concomitant]
     Dosage: 500/50 MCG, ONE PUFF TWICE DAILY
     Route: 065
  8. LEXAPRO [Concomitant]
     Active Substance: ESCITALOPRAM OXALATE
     Route: 065
  9. LIPITOR [Concomitant]
     Active Substance: ATORVASTATIN CALCIUM
     Route: 065
  10. LANTUS [Concomitant]
     Active Substance: INSULIN GLARGINE
     Dosage: 30 UNIT DAILY
     Route: 065
  11. BYETTA [Suspect]
     Active Substance: EXENATIDE
     Indication: TYPE 2 DIABETES MELLITUS
     Route: 058
  12. AVAPRO [Concomitant]
     Active Substance: IRBESARTAN
     Route: 065
  13. GLIMEPIRIDE. [Concomitant]
     Active Substance: GLIMEPIRIDE
     Route: 065
  14. PROTONIX [Concomitant]
     Active Substance: PANTOPRAZOLE SODIUM
     Route: 065

REACTIONS (7)
  - Overdose [Unknown]
  - Dizziness [Unknown]
  - Vomiting [Unknown]
  - Suicide attempt [Unknown]
  - Nausea [Unknown]
  - Asthenia [Unknown]
  - Incision site haematoma [Unknown]

NARRATIVE: CASE EVENT DATE: 20060501
